FAERS Safety Report 8078434-6 (Version None)
Quarter: 2012Q1

REPORT INFORMATION
  Report Type: 
  Country: None (occurrence: None)
  Receive Date: 20120127
  Receipt Date: 20110304
  Transmission Date: 20120608
  Serious: No
  Sender: FDA-Public Use
  Company Number: US-ABBOTT-10P-163-0674793-00

PATIENT
  Age: 26 Year
  Sex: Female

DRUGS (4)
  1. XANAX [Concomitant]
     Indication: ANXIETY
  2. HUMIRA [Suspect]
     Dosage: 160 MG LOADING DOSE
     Dates: start: 20110307
  3. ORTHO TRILO [Concomitant]
     Indication: ORAL CONTRACEPTION
     Dosage: EVERY DAY
  4. HUMIRA [Suspect]
     Indication: CROHN'S DISEASE
     Dates: start: 20100501, end: 20100701

REACTIONS (6)
  - ABSCESS ORAL [None]
  - TOOTH EXTRACTION [None]
  - TOOTH ABSCESS [None]
  - FATIGUE [None]
  - HEADACHE [None]
  - ANXIETY [None]
